FAERS Safety Report 6676145-2 (Version None)
Quarter: 2010Q2

REPORT INFORMATION
  Report Type: 
  Country: None (occurrence: None)
  Receive Date: 20100412
  Receipt Date: 20100406
  Transmission Date: 20101027
  Serious: Yes (Other)
  Sender: FDA-Public Use
  Company Number: US-TEVA-228326USA

PATIENT
  Sex: Female

DRUGS (1)
  1. ESTROPIPATE TABLET 0.75MG,1.5MG,3MG [Suspect]
     Route: 048

REACTIONS (5)
  - ANAPHYLACTIC REACTION [None]
  - BREAST CYST [None]
  - FALL [None]
  - SHOCK [None]
  - TREMOR [None]
